FAERS Safety Report 14789472 (Version 1)
Quarter: 2018Q2

REPORT INFORMATION
  Report Type: Spontaneous
  Country: US (occurrence: US)
  Receive Date: 20180423
  Receipt Date: 20180423
  Transmission Date: 20180711
  Serious: No
  Sender: FDA-Public Use
  Company Number: US-TEVA-798499ACC

PATIENT
  Sex: Male
  Weight: 131.66 kg

DRUGS (10)
  1. LEVOTHYROXINE. [Concomitant]
     Active Substance: LEVOTHYROXINE
     Indication: THYROID DISORDER
     Dosage: 75 MICROGRAM DAILY;
  2. NOVOLOG [Concomitant]
     Active Substance: INSULIN ASPART
     Indication: DIABETES MELLITUS
  3. LEVOTHYROXINE. [Concomitant]
     Active Substance: LEVOTHYROXINE
     Indication: BLOOD PRESSURE MEASUREMENT
  4. LOSARTAN POTASSIUM. [Concomitant]
     Active Substance: LOSARTAN POTASSIUM
     Indication: BLOOD PRESSURE MEASUREMENT
     Dosage: .5 DOSAGE FORMS DAILY;
  5. METFORMIN [Concomitant]
     Active Substance: METFORMIN HYDROCHLORIDE
     Indication: DIABETES MELLITUS
     Dosage: 2000 MILLIGRAM DAILY; STARTED 6 OR 7 YEARS AGO
  6. CITALOPRAM [Concomitant]
     Active Substance: CITALOPRAM HYDROBROMIDE
     Indication: NERVOUSNESS
     Dosage: 10 MILLIGRAM DAILY;
  7. NICOTINIC ACID [Suspect]
     Active Substance: NIACIN
     Indication: METABOLIC DISORDER
     Dosage: 500 MILLIGRAM DAILY; ONCE IN THE MORNING
  8. LOVASTATIN. [Concomitant]
     Active Substance: LOVASTATIN
     Dosage: 40 MILLIGRAM DAILY;
  9. BYDUREON [Concomitant]
     Active Substance: EXENATIDE
  10. TOUJEO [Concomitant]
     Active Substance: INSULIN GLARGINE
     Indication: DIABETES MELLITUS
     Dosage: 60 IU (INTERNATIONAL UNIT) DAILY;

REACTIONS (1)
  - Rash [Unknown]
